FAERS Safety Report 17817013 (Version 1)
Quarter: 2020Q2

REPORT INFORMATION
  Report Type: Spontaneous
  Country: US (occurrence: US)
  Receive Date: 20200522
  Receipt Date: 20200522
  Transmission Date: 20200714
  Serious: Yes (Hospitalization)
  Sender: FDA-Public Use
  Company Number: None

PATIENT
  Sex: Male

DRUGS (3)
  1. TRUPLUS LANC [Concomitant]
  2. ONETOUCH [Concomitant]
  3. HUMIRA [Suspect]
     Active Substance: ADALIMUMAB
     Indication: PSORIASIS
     Dosage: ?          OTHER FREQUENCY:QOWK;?
     Route: 058
     Dates: start: 20191012

REACTIONS (2)
  - Condition aggravated [None]
  - Therapy interrupted [None]
